FAERS Safety Report 23329271 (Version 1)
Quarter: 2023Q4

REPORT INFORMATION
  Report Type: Spontaneous
  Country: US (occurrence: US)
  Receive Date: 20231222
  Receipt Date: 20231222
  Transmission Date: 20240109
  Serious: No
  Sender: FDA-Public Use
  Company Number: US-AUROBINDO-AUR-APL-2023-033822

PATIENT
  Sex: Female

DRUGS (4)
  1. AMOXICILLIN [Suspect]
     Active Substance: AMOXICILLIN
     Indication: Ear infection
     Dosage: UNK
     Route: 065
  2. AUGMENTIN [Suspect]
     Active Substance: AMOXICILLIN\CLAVULANATE POTASSIUM
     Indication: Ear infection
     Dosage: UNK
     Route: 065
  3. CEFTRIAXONE SODIUM [Suspect]
     Active Substance: CEFTRIAXONE SODIUM
     Indication: Urinary tract infection
     Dosage: UNK
     Route: 065
  4. DIFICID [Suspect]
     Active Substance: FIDAXOMICIN
     Indication: Product used for unknown indication
     Dosage: UNK
     Route: 065

REACTIONS (1)
  - Malaise [Unknown]
